FAERS Safety Report 17010477 (Version 1)
Quarter: 2019Q4

REPORT INFORMATION
  Report Type: Spontaneous
  Country: US (occurrence: US)
  Receive Date: 20190930
  Receipt Date: 20190930
  Transmission Date: 20200122
  Serious: No
  Sender: FDA-Public Use
  Company Number: None

PATIENT
  Age: 57 Year
  Sex: Female
  Weight: 58.06 kg

DRUGS (1)
  1. ELETRIPTAN 40MG [Suspect]
     Active Substance: ELETRIPTAN
     Indication: MIGRAINE
     Route: 048
     Dates: start: 201211

REACTIONS (6)
  - Product substitution issue [None]
  - Nausea [None]
  - Condition aggravated [None]
  - Vomiting [None]
  - Headache [None]
  - Pain [None]

NARRATIVE: CASE EVENT DATE: 201304
